FAERS Safety Report 14720832 (Version 1)
Quarter: 2018Q2

REPORT INFORMATION
  Report Type: Spontaneous
  Country: FR (occurrence: FR)
  Receive Date: 20180405
  Receipt Date: 20180405
  Transmission Date: 20180711
  Serious: Yes (Other)
  Sender: FDA-Public Use
  Company Number: FR-MYLANLABS-2018M1021283

PATIENT
  Age: 66 Year
  Sex: Female

DRUGS (1)
  1. TAMOXIFEN [Suspect]
     Active Substance: TAMOXIFEN
     Indication: NEOPLASM MALIGNANT

REACTIONS (3)
  - Weight increased [Unknown]
  - Malaise [Unknown]
  - Metastatic neoplasm [Unknown]
